FAERS Safety Report 15481033 (Version 3)
Quarter: 2019Q1

REPORT INFORMATION
  Report Type: Spontaneous
  Country: FR (occurrence: FR)
  Receive Date: 20181010
  Receipt Date: 20190121
  Transmission Date: 20190417
  Serious: Yes (Other)
  Sender: FDA-Public Use
  Company Number: FR-SA-2018SA275621

PATIENT
  Age: 38 Year
  Sex: Female
  Weight: 80 kg

DRUGS (2)
  1. DUPIXENT [Suspect]
     Active Substance: DUPILUMAB
     Indication: DERMATITIS ATOPIC
     Dosage: 600 MG, 1X
     Route: 058
     Dates: start: 20180711, end: 20180711
  2. DUPIXENT [Suspect]
     Active Substance: DUPILUMAB
     Dosage: 300 MG, QOW
     Route: 058
     Dates: start: 20180725, end: 20181010

REACTIONS (7)
  - Diarrhoea haemorrhagic [Recovered/Resolved]
  - Eczema eyelids [Recovering/Resolving]
  - Eosinophil count increased [Recovering/Resolving]
  - Condition aggravated [Recovering/Resolving]
  - Diarrhoea [Recovered/Resolved]
  - Abdominal pain [Recovered/Resolved]
  - Blood immunoglobulin E decreased [Unknown]

NARRATIVE: CASE EVENT DATE: 20180725
